FAERS Safety Report 7110304-X (Version None)
Quarter: 2010Q4

REPORT INFORMATION
  Report Type: 
  Country: None (occurrence: None)
  Receive Date: 20101112
  Receipt Date: 20101027
  Transmission Date: 20110411
  Serious: Yes (Hospitalization)
  Sender: FDA-Public Use
  Company Number: 1-16441015

PATIENT
  Sex: Female
  Weight: 72.5755 kg

DRUGS (10)
  1. QUININE SULFATE [Suspect]
     Indication: MUSCLE SPASMS
     Dosage: 324 MG, AS NEEDED, ORAL
     Route: 048
     Dates: start: 20050527, end: 20050605
  2. QUININE SULFATE [Suspect]
     Indication: MUSCLE SPASMS
     Dosage: 260 MG, AS NEEDED, ORAL
     Route: 048
     Dates: start: 20020530
  3. NAPROSYN [Concomitant]
  4. MOTRIN [Concomitant]
  5. AMOXICILLIN [Concomitant]
  6. CLOBETASOL [Concomitant]
  7. METHOCARBAMOL [Concomitant]
  8. PREDNISONE [Concomitant]
  9. PROTONIX [Concomitant]
  10. ZITHROMAX [Concomitant]

REACTIONS (5)
  - DRUG HYPERSENSITIVITY [None]
  - GINGIVAL BLEEDING [None]
  - RASH ERYTHEMATOUS [None]
  - SPLENOMEGALY [None]
  - THROMBOCYTOPENIA [None]
